FAERS Safety Report 9431630 (Version 2)
Quarter: 2013Q3

REPORT INFORMATION
  Report Type: Spontaneous
  Country: US (occurrence: US)
  Receive Date: 20130731
  Receipt Date: 20130821
  Transmission Date: 20140515
  Serious: Yes (Hospitalization)
  Sender: FDA-Public Use
  Company Number: US-BIOGENIDEC-2013BI069252

PATIENT
  Age: 75 Year
  Sex: Female

DRUGS (6)
  1. AVONEX [Suspect]
     Indication: MULTIPLE SCLEROSIS
     Route: 030
     Dates: start: 20110512
  2. AVONEX [Suspect]
     Indication: MULTIPLE SCLEROSIS
     Route: 030
     Dates: start: 20120222
  3. TIMOPTIC IN OCUDOSE [Concomitant]
  4. COREG CR [Concomitant]
  5. ADVAIR DISKUS [Concomitant]
  6. LOSARTAN POTASSIUM AND HCTZ [Concomitant]

REACTIONS (1)
  - Cellulitis [Recovered/Resolved]
